FAERS Safety Report 25853264 (Version 1)
Quarter: 2025Q3

REPORT INFORMATION
  Report Type: Spontaneous
  Country: US (occurrence: US)
  Receive Date: 20250926
  Receipt Date: 20250926
  Transmission Date: 20251020
  Serious: Yes (Disabling, Other)
  Sender: ELI LILLY AND COMPANY
  Company Number: US-ELI_LILLY_AND_COMPANY-US202509016567

PATIENT
  Sex: Female

DRUGS (1)
  1. ZEPBOUND [Suspect]
     Active Substance: TIRZEPATIDE
     Indication: Weight control
     Route: 065
     Dates: start: 2025

REACTIONS (6)
  - Paralysis [Unknown]
  - Peroneal nerve palsy [Unknown]
  - Nerve injury [Unknown]
  - Malnutrition [Unknown]
  - Weight decreased [Unknown]
  - Emotional distress [Unknown]
